FAERS Safety Report 5657582-1 (Version None)
Quarter: 2008Q1

REPORT INFORMATION
  Report Type: 
  Country: None (occurrence: None)
  Receive Date: 20080310
  Receipt Date: 20080229
  Transmission Date: 20080703
  Serious: Yes (Death)
  Sender: FDA-Public Use
  Company Number: GXKR2005DK00721

PATIENT
  Age: 31 Year
  Sex: Female
  Weight: 49.6 kg

DRUGS (10)
  1. GESTONETTE (NGX) [Suspect]
     Indication: CONTRACEPTION
     Dosage: 75MG GESTODEN/20MG ETHINYLESTRADIOL
     Route: 048
  2. LEPONEX [Suspect]
     Indication: SCHIZOPHRENIA
     Dosage: 625 MG, QD
     Route: 048
  3. ORAP [Concomitant]
     Dosage: UNK, UNK
     Route: 065
     Dates: start: 20040201
  4. RIVOTRIL [Concomitant]
     Dosage: UNK, UNK
     Route: 065
     Dates: start: 20040901
  5. ZYPREXA [Concomitant]
     Dosage: UNK, UNK
     Route: 065
     Dates: start: 20040401
  6. NOMAZIN [Concomitant]
     Dosage: 100 MG, QD
     Route: 065
  7. PACISYN [Concomitant]
     Route: 065
  8. LYSANTIN [Concomitant]
     Dosage: 50 MG, TID
     Route: 065
  9. ATROPIN [Concomitant]
     Dosage: 0.25 MG, QD
     Route: 065
  10. PAMOL [Concomitant]
     Route: 065

REACTIONS (5)
  - CARDIAC ARREST [None]
  - DYSPNOEA [None]
  - OVARIAN CYST [None]
  - PULMONARY CONGESTION [None]
  - PULMONARY EMBOLISM [None]
